FAERS Safety Report 14020484 (Version 3)
Quarter: 2018Q1

REPORT INFORMATION
  Report Type: Spontaneous
  Country: US (occurrence: US)
  Receive Date: 20170928
  Receipt Date: 20180320
  Transmission Date: 20180508
  Serious: Yes (Other)
  Sender: FDA-Public Use
  Company Number: US-AVEDRO-AVE-2017-0231-AE

PATIENT
  Age: 49 Year
  Sex: Male
  Weight: 77.18 kg

DRUGS (7)
  1. VIGAMOX [Concomitant]
     Active Substance: MOXIFLOXACIN HYDROCHLORIDE
     Indication: PRODUCT USED FOR UNKNOWN INDICATION
     Dosage: 3 TIMES DAILY
     Dates: start: 20170811, end: 20170818
  2. PRK POST-ANESTHETIC DROP (2 DROPS OF PROPARACAINE IN A BOTTLE OF UNSPE [Suspect]
     Active Substance: PROPARACAINE
     Indication: ANAESTHESIA
     Dosage: A FEW DROPS DURING THE WEEK
     Route: 047
     Dates: start: 201708, end: 201708
  3. DUREZOL [Concomitant]
     Active Substance: DIFLUPREDNATE
     Indication: PRODUCT USED FOR UNKNOWN INDICATION
     Dosage: 3 TIMES DAILY
     Dates: start: 20170811, end: 20170818
  4. PHOTREXA VISCOUS [Suspect]
     Active Substance: RIBOFLAVIN 5^-PHOSPHATE SODIUM
     Indication: KERATOCONUS
     Dosage: 1 DROP IN THE RIGHT EYE EVERY 2 MINUTES (30 TOTAL DROPS)
     Route: 047
     Dates: start: 20170811, end: 20170811
  5. PRED ACETATE [Concomitant]
     Indication: PRODUCT USED FOR UNKNOWN INDICATION
     Dosage: 3 TIMES DAILY
  6. DICLOFENAC [Suspect]
     Active Substance: DICLOFENAC
     Indication: PRODUCT USED FOR UNKNOWN INDICATION
     Dosage: 3 TIMES DAILY
     Route: 047
     Dates: start: 20170811, end: 20170817
  7. OFLOXACIN. [Concomitant]
     Active Substance: OFLOXACIN
     Indication: PRODUCT USED FOR UNKNOWN INDICATION
     Dosage: 3 TIMES DAILY

REACTIONS (6)
  - Corneal epithelium defect [Unknown]
  - Ulcerative keratitis [Recovered/Resolved with Sequelae]
  - Eye discharge [Recovered/Resolved]
  - Post procedural infection [Recovered/Resolved with Sequelae]
  - Corneal infiltrates [Unknown]
  - Corneal scar [Unknown]

NARRATIVE: CASE EVENT DATE: 20170817
